FAERS Safety Report 18016142 (Version 1)
Quarter: 2020Q3

REPORT INFORMATION
  Report Type: Spontaneous
  Country: US (occurrence: US)
  Receive Date: 20200714
  Receipt Date: 20200714
  Transmission Date: 20201103
  Serious: No
  Sender: FDA-Public Use
  Company Number: US-AMGEN-USASP2020096480

PATIENT
  Age: 83 Year
  Sex: Female

DRUGS (5)
  1. LEVOTHYROXINE. [Concomitant]
     Active Substance: LEVOTHYROXINE
     Indication: THYROID DISORDER
  2. METOPROLOL. [Concomitant]
     Active Substance: METOPROLOL
     Indication: BLOOD PRESSURE ABNORMAL
  3. ANORO [Concomitant]
     Active Substance: UMECLIDINIUM BROMIDE\VILANTEROL TRIFENATATE
     Indication: CHRONIC OBSTRUCTIVE PULMONARY DISEASE
  4. OTEZLA [Suspect]
     Active Substance: APREMILAST
     Indication: PRURITUS
     Dosage: 30 MILLIGRAM, BID
     Route: 048
     Dates: start: 20200518
  5. LORAZEPAM. [Concomitant]
     Active Substance: LORAZEPAM
     Indication: SLEEP DISORDER

REACTIONS (3)
  - Feeling abnormal [Recovered/Resolved]
  - Gastrointestinal sounds abnormal [Unknown]
  - Drug titration error [Unknown]

NARRATIVE: CASE EVENT DATE: 202005
